FAERS Safety Report 6495999-6 (Version None)
Quarter: 2009Q4

REPORT INFORMATION
  Report Type: 
  Country: None (occurrence: None)
  Receive Date: 20091214
  Receipt Date: 20090914
  Transmission Date: 20100525
  Serious: No
  Sender: FDA-Public Use
  Company Number: US-BRISTOL-MYERS SQUIBB COMPANY-14778583

PATIENT
  Sex: Female

DRUGS (4)
  1. ABILIFY [Suspect]
     Indication: POST-TRAUMATIC STRESS DISORDER
     Dates: start: 20090701
  2. ABILIFY [Suspect]
     Indication: MANIA
     Dates: start: 20090701
  3. DEPAKOTE [Suspect]
     Indication: POST-TRAUMATIC STRESS DISORDER
     Dates: start: 20090701
  4. DEPAKOTE [Suspect]
     Indication: MANIA
     Dates: start: 20090701

REACTIONS (4)
  - DIZZINESS [None]
  - HEADACHE [None]
  - NAUSEA [None]
  - OLIGURIA [None]
